FAERS Safety Report 7490139-9 (Version None)
Quarter: 2011Q2

REPORT INFORMATION
  Report Type: 
  Country: None (occurrence: None)
  Receive Date: 20110517
  Receipt Date: 20110517
  Transmission Date: 20111010
  Serious: No
  Sender: FDA-Public Use
  Company Number: None

PATIENT
  Sex: Male
  Weight: 59.1 kg

DRUGS (2)
  1. TAXOL [Suspect]
     Dosage: 74 MG
  2. CARBOPLATIN [Suspect]
     Dosage: 245 MG
     Dates: end: 20110502

REACTIONS (5)
  - FATIGUE [None]
  - BODY TEMPERATURE INCREASED [None]
  - DYSPEPSIA [None]
  - PNEUMONIA [None]
  - BRONCHITIS [None]
